FAERS Safety Report 4353787-0 (Version None)
Quarter: 2004Q2

REPORT INFORMATION
  Report Type: 
  Country: None (occurrence: None)
  Receive Date: 20040430
  Receipt Date: 20031007
  Transmission Date: 20050107
  Serious: Yes (Hospitalization)
  Sender: FDA-Public Use
  Company Number: US050847

PATIENT
  Sex: Female
  Weight: 55.8 kg

DRUGS (5)
  1. EPOGEN [Suspect]
     Indication: DIALYSIS
     Dosage: 20000 , 3 TIMES/WK
     Dates: start: 20020101
  2. HYDROMORPHONE HYDROCHLORIDE [Concomitant]
  3. LORAZEPAM [Concomitant]
  4. ONDANSETRON HCL [Concomitant]
  5. DIPHENHYDRAMINE HCL [Concomitant]

REACTIONS (3)
  - HAEMOGLOBIN DECREASED [None]
  - NAUSEA [None]
  - VOMITING [None]
